FAERS Safety Report 22523056 (Version 1)
Quarter: 2023Q2

REPORT INFORMATION
  Report Type: Spontaneous
  Country: CN (occurrence: CN)
  Receive Date: 20230606
  Receipt Date: 20230606
  Transmission Date: 20230722
  Serious: Yes (Hospitalization, Other)
  Sender: FDA-Public Use
  Company Number: CN-BoehringerIngelheim-2023-BI-242041

PATIENT
  Age: 54 Year
  Sex: Male
  Weight: 68.0 kg

DRUGS (1)
  1. GILOTRIF [Suspect]
     Active Substance: AFATINIB
     Indication: EGFR gene mutation
     Route: 048
     Dates: start: 20230514, end: 20230530

REACTIONS (2)
  - Rash pustular [Recovering/Resolving]
  - Dermatitis infected [Recovering/Resolving]

NARRATIVE: CASE EVENT DATE: 20230525
